FAERS Safety Report 18307147 (Version 1)
Quarter: 2020Q3

REPORT INFORMATION
  Report Type: Spontaneous
  Country: US (occurrence: US)
  Receive Date: 20200924
  Receipt Date: 20200924
  Transmission Date: 20201103
  Serious: No
  Sender: FDA-Public Use
  Company Number: US-BAYER-2020-201754

PATIENT
  Age: 77 Year
  Sex: Male

DRUGS (2)
  1. EQUATE STOOL SOFTENER [Suspect]
     Active Substance: CASANTHRANOL\DOCUSATE SODIUM
  2. MIRALAX [Suspect]
     Active Substance: POLYETHYLENE GLYCOL 3350
     Indication: GASTROINTESTINAL DISORDER
     Dosage: THE RECOMMENDED DOSE
     Route: 048
     Dates: start: 20200914, end: 20200916

REACTIONS (2)
  - Illness [Unknown]
  - Drug ineffective [Unknown]
